FAERS Safety Report 13865551 (Version 1)
Quarter: 2017Q3

REPORT INFORMATION
  Report Type: Spontaneous
  Country: US (occurrence: US)
  Receive Date: 20170814
  Receipt Date: 20170814
  Transmission Date: 20171127
  Serious: No
  Sender: FDA-Public Use
  Company Number: US-PFIZER INC-2017348820

PATIENT
  Age: 37 Year
  Sex: Male
  Weight: 70 kg

DRUGS (3)
  1. CHANTIX [Suspect]
     Active Substance: VARENICLINE TARTRATE
     Indication: SMOKING CESSATION THERAPY
     Dosage: 0.5 MG, 2X/DAY
     Dates: start: 201707, end: 201707
  2. GENVOYA [Concomitant]
     Active Substance: COBICISTAT\ELVITEGRAVIR\EMTRICITABINE\TENOFOVIR ALAFENAMIDE FUMARATE
     Indication: IMMUNODEFICIENCY
     Dosage: [ELVITEGRAVIR 150MG]/[COBICISTAT 150MG]/[EMTRICITABINE 200MG]/[TENOFOVIR 10MG]
     Dates: start: 201507
  3. CHANTIX [Suspect]
     Active Substance: VARENICLINE TARTRATE
     Dosage: 1 MG, 2X/DAY
     Dates: start: 201707, end: 201707

REACTIONS (2)
  - Drug ineffective [Unknown]
  - Emotional disorder [Unknown]
